FAERS Safety Report 4440731-0 (Version None)
Quarter: 2004Q3

REPORT INFORMATION
  Report Type: 
  Country: None (occurrence: None)
  Receive Date: 20040728
  Receipt Date: 20040311
  Transmission Date: 20050211
  Serious: No
  Sender: FDA-Public Use
  Company Number: USA040361739

PATIENT
  Age: 9 Year
  Sex: Male
  Weight: 28 kg

DRUGS (1)
  1. STRATTERA [Suspect]
     Indication: ATTENTION DEFICIT/HYPERACTIVITY DISORDER
     Dosage: 25 MG IN THE EVENING
     Dates: start: 20040310

REACTIONS (4)
  - ABNORMAL BEHAVIOUR [None]
  - HEADACHE [None]
  - MIDDLE INSOMNIA [None]
  - POLLAKIURIA [None]
